FAERS Safety Report 6681556-5 (Version None)
Quarter: 2010Q2

REPORT INFORMATION
  Report Type: 
  Country: None (occurrence: None)
  Receive Date: 20100414
  Receipt Date: 20100407
  Transmission Date: 20101027
  Serious: Yes (Hospitalization)
  Sender: FDA-Public Use
  Company Number: PHHY2009CA14356

PATIENT
  Sex: Male

DRUGS (2)
  1. SANDOSTATIN LAR [Suspect]
     Indication: NEUROENDOCRINE TUMOUR
     Dosage: 30 MG, QMO
     Route: 030
     Dates: start: 20080320
  2. SANDOSTATIN LAR [Suspect]
     Dosage: 40 MG, QMO
     Route: 030
     Dates: end: 20091223

REACTIONS (12)
  - ABDOMINAL PAIN [None]
  - BLOOD POTASSIUM INCREASED [None]
  - BLOOD PRESSURE SYSTOLIC INCREASED [None]
  - CHOLECYSTECTOMY [None]
  - CHOLECYSTITIS INFECTIVE [None]
  - CHOLELITHIASIS [None]
  - DIARRHOEA [None]
  - HEPATIC EMBOLISATION [None]
  - HEPATIC LESION [None]
  - MALIGNANT NEOPLASM PROGRESSION [None]
  - NAUSEA [None]
  - VOMITING [None]
